APPROVED DRUG PRODUCT: ACETAZOLAMIDE
Active Ingredient: ACETAZOLAMIDE
Strength: 250MG
Dosage Form/Route: TABLET;ORAL
Application: A215101 | Product #002 | TE Code: AB
Applicant: RUBICON RESEARCH LTD
Approved: Aug 19, 2021 | RLD: No | RS: No | Type: RX